FAERS Safety Report 8810680 (Version 1)
Quarter: 2012Q4

REPORT INFORMATION
  Report Type: 
  Country: CA (occurrence: CA)
  Receive Date: 20120927
  Receipt Date: 20120927
  Transmission Date: 20130627
  Serious: Yes (Other)
  Sender: FDA-Public Use
  Company Number: CA-BAYER-2012-100273

PATIENT
  Age: 75 Year
  Sex: Female

DRUGS (8)
  1. BETASERON [Suspect]
     Indication: SECONDARY PROGRESSIVE MULTIPLE SCLEROSIS
     Dosage: 0.250 mg, UNK
     Route: 058
     Dates: start: 19990203, end: 20120925
  2. BACLOFEN [Concomitant]
  3. TOLTERODINE [Concomitant]
  4. BUPROPION [Concomitant]
  5. ACETYLSALICYLIC ACID (} 100 MG) [Concomitant]
  6. NAPROXEN SODIUM ({= 220 MG) [Concomitant]
  7. VITAMIN B12 [Concomitant]
  8. OMEGA 3-6-9 [Concomitant]

REACTIONS (3)
  - Multiple sclerosis [Not Recovered/Not Resolved]
  - Immune system disorder [Not Recovered/Not Resolved]
  - White blood cell count decreased [Not Recovered/Not Resolved]
